FAERS Safety Report 17531270 (Version 2)
Quarter: 2020Q1

REPORT INFORMATION
  Report Type: Report from Study
  Country: None (occurrence: RO)
  Receive Date: 20200312
  Receipt Date: 20200321
  Transmission Date: 20200409
  Serious: Yes (Hospitalization)
  Sender: FDA-Public Use
  Company Number: RO-ABBVIE-20K-135-3314025-00

PATIENT
  Age: 49 Year
  Sex: Male

DRUGS (5)
  1. DUODOPA [Suspect]
     Active Substance: CARBIDOPA\LEVODOPA
     Dosage: DM=7.00?DC=2.70?ED=1.80?NRED=0;?DMN=0.00?DCN=0.00?EDN=0.00?NREDN=0
     Route: 050
     Dates: start: 20200316
  2. DUODOPA [Suspect]
     Active Substance: CARBIDOPA\LEVODOPA
     Indication: PARKINSON^S DISEASE
     Dosage: DM=5.00?DC=4.50?ED=3.00?NRED=0;?DMN=0.00?DCN=4.00?EDN=4.00?NREDN=0
     Route: 050
     Dates: start: 20190913, end: 20200309
  3. ISICOM [Concomitant]
     Active Substance: CARBIDOPA\LEVODOPA
     Indication: PARKINSON^S DISEASE
     Dosage: 1/2-3/4-3/4
     Route: 048
     Dates: start: 20200309
  4. VIREGYT [Concomitant]
     Indication: PARKINSON^S DISEASE
     Route: 048
     Dates: start: 20200309
  5. AZILECT [Concomitant]
     Active Substance: RASAGILINE MESYLATE
     Indication: PARKINSON^S DISEASE
     Route: 048
     Dates: start: 20200309

REACTIONS (5)
  - Psychotic disorder [Recovered/Resolved]
  - Agitation [Recovering/Resolving]
  - Hallucination [Recovered/Resolved]
  - Behaviour disorder [Recovered/Resolved]
  - Aggression [Recovered/Resolved]

NARRATIVE: CASE EVENT DATE: 20200309
